FAERS Safety Report 15735409 (Version 1)
Quarter: 2018Q4

REPORT INFORMATION
  Report Type: Spontaneous
  Country: US (occurrence: US)
  Receive Date: 20181218
  Receipt Date: 20181218
  Transmission Date: 20190205
  Serious: Yes (Death, Life-Threatening, Hospitalization, Disabling, Other)
  Sender: FDA-Public Use
  Company Number: None

PATIENT
  Age: 71 Year
  Sex: Female
  Weight: 83.2 kg

DRUGS (9)
  1. LIDOCAINE. [Concomitant]
     Active Substance: LIDOCAINE
     Dates: start: 20180715, end: 20180716
  2. HYDRALAZINE [Concomitant]
     Active Substance: HYDRALAZINE HYDROCHLORIDE
     Dates: start: 20180717, end: 20180726
  3. METHYLPREDNISONE [Concomitant]
     Active Substance: METHYLPREDNISOLONE
     Dates: start: 20180716, end: 20180718
  4. PREDNISONE. [Concomitant]
     Active Substance: PREDNISONE
     Dates: start: 20180715, end: 20180730
  5. ADENOSINE. [Concomitant]
     Active Substance: ADENOSINE
     Dates: start: 20180715, end: 20180715
  6. NITROGLYCERIN. [Concomitant]
     Active Substance: NITROGLYCERIN
     Dates: start: 20180716, end: 20180717
  7. AMIODARONE [Concomitant]
     Active Substance: AMIODARONE
     Dates: start: 20180715, end: 20180730
  8. MYCOPHENOLATE [Concomitant]
     Active Substance: MYCOPHENOLIC ACID
     Dates: start: 20180716, end: 20180721
  9. IPILIMUMAB [Suspect]
     Active Substance: IPILIMUMAB
     Indication: MALIGNANT MELANOMA
     Dosage: ?          OTHER FREQUENCY:EVERY 21 DAYS;?
     Route: 042
     Dates: start: 20180608, end: 20180702

REACTIONS (9)
  - Ventricular tachycardia [None]
  - Myocarditis [None]
  - Alanine aminotransferase increased [None]
  - Ejection fraction decreased [None]
  - Multi-organ disorder [None]
  - Aspartate aminotransferase increased [None]
  - Fatigue [None]
  - Tachycardia [None]
  - Blood creatinine increased [None]

NARRATIVE: CASE EVENT DATE: 20180715
